FAERS Safety Report 5199217-0 (Version None)
Quarter: 2007Q1

REPORT INFORMATION
  Report Type: 
  Country: None (occurrence: None)
  Receive Date: 20070104
  Receipt Date: 20061204
  Transmission Date: 20070707
  Serious: Yes (Hospitalization, Other)
  Sender: FDA-Public Use
  Company Number: US-PFIZER INC-2006152021

PATIENT
  Sex: Female

DRUGS (2)
  1. BEXTRA [Suspect]
     Dates: start: 20030122, end: 20030925
  2. VIOXX [Suspect]
     Dates: start: 20010911, end: 20040101

REACTIONS (1)
  - CEREBROVASCULAR ACCIDENT [None]
